FAERS Safety Report 4420574-4 (Version None)
Quarter: 2004Q2

REPORT INFORMATION
  Report Type: 
  Country: None (occurrence: None)
  Receive Date: 20040618
  Receipt Date: 20030512
  Transmission Date: 20050107
  Serious: Yes (Hospitalization, Other)
  Sender: FDA-Public Use
  Company Number: US-SHR-03-007453

PATIENT
  Age: 30 Year
  Sex: Female

DRUGS (4)
  1. FLUDARA [Suspect]
     Indication: ACUTE MYELOID LEUKAEMIA
     Dosage: SEE IMAGE
     Route: 042
     Dates: start: 20030426, end: 20030427
  2. FLUDARA [Suspect]
     Indication: ACUTE MYELOID LEUKAEMIA
     Dosage: SEE IMAGE
     Route: 042
     Dates: start: 20030428, end: 20030430
  3. CYTARABINE [Suspect]
     Dosage: 2 GM/M2 D1, 3, 4, 5, INTRAVENOUS
     Route: 042
     Dates: start: 20030426, end: 20030430
  4. G-CSF (GRANULOCYTE COLONY STIMULATING FACTOR) [Concomitant]

REACTIONS (3)
  - ACUTE RESPIRATORY DISTRESS SYNDROME [None]
  - CORYNEBACTERIUM INFECTION [None]
  - MEDICATION ERROR [None]
